FAERS Safety Report 6703494-1 (Version None)
Quarter: 2010Q2

REPORT INFORMATION
  Report Type: 
  Country: None (occurrence: None)
  Receive Date: 20100430
  Receipt Date: 20100416
  Transmission Date: 20101027
  Serious: Yes (Hospitalization)
  Sender: FDA-Public Use
  Company Number: US-RANBAXY-2010US-33317

PATIENT

DRUGS (27)
  1. GANCICLOVIR [Suspect]
     Indication: ANTIVIRAL PROPHYLAXIS
     Dosage: 1000 MG, 3 IN 1 D
     Route: 048
     Dates: start: 20080604, end: 20080722
  2. GANCICLOVIR [Suspect]
     Dosage: 1000 MG, 3 IN 1D
     Route: 048
     Dates: start: 20080718, end: 20080722
  3. MARIBAVIR (PLACEBO) [Suspect]
     Indication: ANTIVIRAL PROPHYLAXIS
     Dosage: 100 MG 2 IN 1 D
     Route: 048
     Dates: start: 20080604, end: 20080722
  4. MARIBAVIR (PLACEBO) [Suspect]
     Dosage: 100 MG, 2 IN 1 D
     Route: 048
     Dates: start: 20080718, end: 20080722
  5. ACYCLOVIR (PLACEBO) [Suspect]
     Indication: ANTIVIRAL PROPHYLAXIS
     Dosage: 400 MG, 2 IN 1 D
     Route: 048
     Dates: start: 20080604, end: 20080722
  6. ACYCLOVIR (PLACEBO) [Suspect]
     Dosage: 400 MG, 2 IN 1 D
     Dates: start: 20080718, end: 20080722
  7. ACTIGALL [Suspect]
     Indication: PROPHYLAXIS
     Route: 065
  8. CELLCEPT [Suspect]
     Indication: LIVER TRANSPLANT REJECTION
     Route: 065
  9. MAGNESIUM OXIDE [Suspect]
     Indication: MINERAL SUPPLEMENTATION
     Route: 065
  10. LEVOFLOXACIN [Suspect]
     Indication: ANTIBIOTIC PROPHYLAXIS
     Route: 048
     Dates: start: 20080911, end: 20080912
  11. ACYCLOVIR [Concomitant]
     Indication: ANTIVIRAL PROPHYLAXIS
     Route: 065
  12. AMLODIPINE [Concomitant]
     Indication: HYPERTENSION
     Route: 065
  13. FERROUS SULFATE TAB [Concomitant]
     Indication: ANAEMIA
  14. FUROSEMIDE [Concomitant]
     Indication: OEDEMA
     Route: 065
  15. GLIPIZIDE [Concomitant]
     Indication: DIABETES MELLITUS
     Route: 065
  16. IMODIUM [Concomitant]
     Indication: DIARRHOEA
     Route: 065
  17. LORAZEPAM [Concomitant]
     Indication: ANXIETY
     Route: 065
  18. METOPROLOL [Concomitant]
     Indication: HYPERTENSION
     Dosage: UNK
     Route: 065
  19. NEURONTIN [Concomitant]
     Indication: NEUROPATHY PERIPHERAL
     Route: 065
  20. NEXIUM [Concomitant]
     Indication: GASTROOESOPHAGEAL REFLUX PROPHYLAXIS
     Route: 065
  21. NIFEREX [Concomitant]
     Indication: ANAEMIA
     Route: 065
  22. OMEPRAZOLE [Concomitant]
     Indication: GASTROOESOPHAGEAL REFLUX PROPHYLAXIS
     Route: 065
  23. PROGRAF [Concomitant]
     Indication: PROPHYLAXIS AGAINST TRANSPLANT REJECTION
     Route: 065
  24. PROPRANOLOL [Concomitant]
     Indication: HYPERTENSION
     Route: 065
  25. SEPTRA [Concomitant]
     Indication: ANTIFUNGAL PROPHYLAXIS
     Route: 065
  26. VALCYTE [Concomitant]
     Indication: ANTIVIRAL PROPHYLAXIS
     Dosage: UNK
     Route: 065
     Dates: start: 20080723
  27. ZOLPIDEM [Concomitant]
     Indication: INSOMNIA
     Route: 065

REACTIONS (4)
  - ASCITES [None]
  - BLOOD CREATININE INCREASED [None]
  - DIARRHOEA [None]
  - LEUKOCYTOCLASTIC VASCULITIS [None]
